FAERS Safety Report 12828879 (Version 1)
Quarter: 2016Q4

REPORT INFORMATION
  Report Type: Spontaneous
  Country: US (occurrence: US)
  Receive Date: 20161007
  Receipt Date: 20161007
  Transmission Date: 20170207
  Serious: Yes (Other)
  Sender: FDA-Public Use
  Company Number: US-SA-2015SA172458

PATIENT
  Age: 61 Year
  Sex: Female

DRUGS (10)
  1. AUBAGIO [Suspect]
     Active Substance: TERIFLUNOMIDE
     Indication: MULTIPLE SCLEROSIS
     Route: 048
  2. HYDROCHLOROTHIAZIDE. [Concomitant]
     Active Substance: HYDROCHLOROTHIAZIDE
  3. CLONAZEPAM. [Concomitant]
     Active Substance: CLONAZEPAM
  4. VITAMIN B12 [Concomitant]
     Active Substance: CYANOCOBALAMIN
  5. LACTULOSE. [Concomitant]
     Active Substance: LACTULOSE
  6. TOLTERODINE TARTRATE. [Concomitant]
     Active Substance: TOLTERODINE TARTRATE
  7. BACLOFEN. [Concomitant]
     Active Substance: BACLOFEN
  8. GABAPENTIN. [Concomitant]
     Active Substance: GABAPENTIN
  9. AMPYRA [Concomitant]
     Active Substance: DALFAMPRIDINE
  10. CALCIUM [Concomitant]
     Active Substance: CALCIUM
     Dosage: 600

REACTIONS (6)
  - Multiple sclerosis relapse [Unknown]
  - Musculoskeletal stiffness [Unknown]
  - Gait disturbance [Unknown]
  - Fatigue [Unknown]
  - Muscular weakness [Unknown]
  - Paraesthesia [Unknown]

NARRATIVE: CASE EVENT DATE: 201508
